FAERS Safety Report 5123546-X (Version None)
Quarter: 2006Q3

REPORT INFORMATION
  Report Type: 
  Country: None (occurrence: None)
  Receive Date: 20060801
  Receipt Date: 20060222
  Transmission Date: 20061208
  Serious: Yes (Hospitalization)
  Sender: FDA-Public Use
  Company Number: MIN-00003

PATIENT
  Sex: Female

DRUGS (2)
  1. MINOCYCLINE HCL [Suspect]
     Indication: PYREXIA
  2. MINOCYCLINE HCL [Suspect]
     Indication: RASH

REACTIONS (1)
  - HYPERSENSITIVITY [None]
